FAERS Safety Report 4422915-0 (Version None)
Quarter: 2004Q3

REPORT INFORMATION
  Report Type: 
  Country: None (occurrence: None)
  Receive Date: 20040804
  Receipt Date: 20040708
  Transmission Date: 20050211
  Serious: Yes (Other)
  Sender: FDA-Public Use
  Company Number: USA040465150

PATIENT
  Age: 72 Year
  Sex: Female
  Weight: 53 kg

DRUGS (5)
  1. FORTEO [Suspect]
     Indication: OSTEOPOROSIS
     Dosage: 20 UG/1 DAY
     Dates: start: 20040101
  2. MOBIC [Concomitant]
  3. ZETIA [Concomitant]
  4. NIACIN [Concomitant]
  5. PROTONIX [Concomitant]

REACTIONS (5)
  - ABASIA [None]
  - BACK PAIN [None]
  - FEELING ABNORMAL [None]
  - INJECTION SITE PAIN [None]
  - PHARMACEUTICAL PRODUCT COMPLAINT [None]
